FAERS Safety Report 9226541 (Version 3)
Quarter: 2013Q2

REPORT INFORMATION
  Report Type: Spontaneous
  Country: US (occurrence: US)
  Receive Date: 20130412
  Receipt Date: 20130513
  Transmission Date: 20140414
  Serious: Yes (Hospitalization, Other)
  Sender: FDA-Public Use
  Company Number: US-BIOGENIDEC-2013BI030808

PATIENT
  Age: 51 Year
  Sex: Female

DRUGS (13)
  1. TYSABRI [Suspect]
     Indication: MULTIPLE SCLEROSIS
     Route: 042
     Dates: start: 20111102, end: 201304
  2. AVONEX [Concomitant]
     Indication: MULTIPLE SCLEROSIS
     Route: 030
     Dates: start: 20020920
  3. HYDROCODONE-ACETAMINOPHEN [Concomitant]
  4. ZOLPIDEM [Concomitant]
  5. CHOLECALCIFEROL [Concomitant]
  6. CYCLOBENZAPRINE [Concomitant]
  7. BUPROPION [Concomitant]
  8. FAMOTIDINE [Concomitant]
  9. IBUPROFEN [Concomitant]
  10. HYDROCHLOROTHIAZIDE [Concomitant]
  11. ACETAMINOPHEN [Concomitant]
  12. BENAZEPRIL [Concomitant]
  13. ESTROGEN [Concomitant]

REACTIONS (4)
  - Cervix carcinoma [Not Recovered/Not Resolved]
  - Constipation [Unknown]
  - Pelvic pain [Unknown]
  - Smear cervix abnormal [Recovered/Resolved]
